FAERS Safety Report 9724906 (Version 2)
Quarter: 2013Q4

REPORT INFORMATION
  Report Type: Spontaneous
  Country: US (occurrence: US)
  Receive Date: 20131202
  Receipt Date: 20131202
  Transmission Date: 20140711
  Serious: No
  Sender: FDA-Public Use
  Company Number: US-GILEAD-2013-0086244

PATIENT
  Age: 67 Year
  Sex: Male

DRUGS (2)
  1. LETAIRIS [Suspect]
     Indication: PRODUCT USED FOR UNKNOWN INDICATION
     Dosage: 5 MG, QD
     Dates: start: 20131010
  2. TYVASO [Concomitant]

REACTIONS (3)
  - Flatulence [Recovered/Resolved]
  - Diarrhoea [Recovered/Resolved]
  - Blood glucose decreased [Unknown]
